FAERS Safety Report 4795319-9 (Version None)
Quarter: 2005Q4

REPORT INFORMATION
  Report Type: 
  Country: None (occurrence: None)
  Receive Date: 20051012
  Receipt Date: 20051004
  Transmission Date: 20060501
  Serious: Yes (Other)
  Sender: FDA-Public Use
  Company Number: IE-GLAXOSMITHKLINE-B0396289A

PATIENT
  Sex: Male

DRUGS (1)
  1. AUGMENTIN '125' [Suspect]
     Dosage: 375MG THREE TIMES PER DAY
     Route: 065
     Dates: start: 20051003

REACTIONS (2)
  - MUSCLE TWITCHING [None]
  - MYASTHENIA GRAVIS [None]
